FAERS Safety Report 6701796-6 (Version None)
Quarter: 2010Q2

REPORT INFORMATION
  Report Type: 
  Country: None (occurrence: None)
  Receive Date: 20100429
  Receipt Date: 20100426
  Transmission Date: 20101027
  Serious: Yes (Hospitalization)
  Sender: FDA-Public Use
  Company Number: PHHY2010US23174

PATIENT
  Sex: Female

DRUGS (10)
  1. STARLIX [Suspect]
  2. NATEGLINIDE [Suspect]
  3. PROTONIX [Concomitant]
  4. FUROSEMIDE [Concomitant]
  5. ZETIA [Concomitant]
  6. BENAZEPRIL HYDROCHLORIDE [Concomitant]
  7. SPIRONOLACTONE [Concomitant]
  8. LEVOTHYROXINE [Concomitant]
  9. ALPEMO [Concomitant]
  10. AMEROTERONE [Concomitant]

REACTIONS (4)
  - CARDIAC ARREST [None]
  - DIABETES MELLITUS INADEQUATE CONTROL [None]
  - NEOPLASM MALIGNANT [None]
  - THROAT IRRITATION [None]
